FAERS Safety Report 26151184 (Version 1)
Quarter: 2025Q4

REPORT INFORMATION
  Report Type: Report from Study
  Country: EU (occurrence: EU)
  Receive Date: 20251212
  Receipt Date: 20251212
  Transmission Date: 20260119
  Serious: Yes (Hospitalization, Other)
  Sender: PFIZER
  Company Number: None

PATIENT
  Age: 73 Year
  Sex: Female

DRUGS (4)
  1. IRINOTECAN HYDROCHLORIDE [Suspect]
     Active Substance: IRINOTECAN HYDROCHLORIDE
     Dosage: UNK
     Dates: start: 202507
  2. FOLIC ACID [Concomitant]
     Active Substance: FOLIC ACID
     Dosage: UNK
     Dates: start: 202507
  3. FLUOROURACIL [Concomitant]
     Active Substance: FLUOROURACIL
     Dosage: UNK
  4. AVASTIN [Concomitant]
     Active Substance: BEVACIZUMAB
     Dosage: UNK

REACTIONS (2)
  - Diarrhoea haemorrhagic [Recovered/Resolved]
  - Cholinergic syndrome [Recovered/Resolved]

NARRATIVE: CASE EVENT DATE: 20250701
